FAERS Safety Report 10101693 (Version 1)
Quarter: 2014Q2

REPORT INFORMATION
  Report Type: Spontaneous
  Country: GB (occurrence: None)
  Receive Date: 20140418
  Receipt Date: 20140418
  Transmission Date: 20141212
  Serious: Yes (Death)
  Sender: FDA-Public Use
  Company Number: 2266697

PATIENT
  Sex: Male

DRUGS (3)
  1. (MEROPENEM) [Suspect]
     Indication: PRODUCT USED FOR UNKNOWN INDICATION
  2. COLISTIN [Suspect]
     Indication: ENTEROBACTER INFECTION
  3. TIGECYCLINE [Suspect]
     Indication: ENTEROBACTER INFECTION

REACTIONS (2)
  - Drug ineffective [None]
  - Pathogen resistance [None]
